FAERS Safety Report 8170621-1 (Version None)
Quarter: 2012Q1

REPORT INFORMATION
  Report Type: 
  Country: None (occurrence: None)
  Receive Date: 20120104
  Receipt Date: 20111110
  Transmission Date: 20120608
  Serious: No
  Sender: FDA-Public Use
  Company Number: 2011HGS-002622

PATIENT
  Age: 44 Year
  Sex: Female
  Weight: 47.6277 kg

DRUGS (7)
  1. PLAQUENIL [Concomitant]
  2. PREDNISONE TAB [Concomitant]
  3. VITAMIN B12 [Concomitant]
  4. BIOTIN (BIOTIN) [Concomitant]
  5. MULTIVITAMIN (MULTIVITAMIN) (ERGOCALCIFEROL, ASCORBIC ACID, FOLIC ACID [Concomitant]
  6. BENLYSTA [Suspect]
     Indication: SYSTEMIC LUPUS ERYTHEMATOSUS
     Dosage: 10 MG/KG, 1 IN 21 D, INTRAVENOUS DRIP
     Route: 041
     Dates: start: 20110620
  7. VITMAIN C (ASCORBIC ACID) [Concomitant]

REACTIONS (8)
  - PHARYNGEAL OEDEMA [None]
  - SYSTEMIC LUPUS ERYTHEMATOSUS [None]
  - ARTHRALGIA [None]
  - URINARY TRACT INFECTION [None]
  - NAUSEA [None]
  - DIZZINESS [None]
  - KIDNEY INFECTION [None]
  - FATIGUE [None]
